APPROVED DRUG PRODUCT: QTERN
Active Ingredient: DAPAGLIFLOZIN; SAXAGLIPTIN HYDROCHLORIDE
Strength: 5MG;EQ 5MG BASE
Dosage Form/Route: TABLET;ORAL
Application: N209091 | Product #002
Applicant: ASTRAZENECA AB
Approved: May 2, 2019 | RLD: Yes | RS: No | Type: DISCN

PATENTS:
Patent 8501698 | Expires: Jun 20, 2027
Patent 6515117 | Expires: Oct 4, 2025
Patent 8361972 | Expires: Mar 21, 2028
Patent 8716251 | Expires: Mar 21, 2028
Patent 7919598 | Expires: Dec 16, 2029
Patent 8221786 | Expires: Mar 21, 2028
Patent 8501698*PED | Expires: Dec 20, 2027
Patent 7919598*PED | Expires: Jun 16, 2030
Patent 8221786*PED | Expires: Sep 21, 2028
Patent 8716251*PED | Expires: Sep 21, 2028
Patent 8361972*PED | Expires: Sep 21, 2028
Patent 6515117*PED | Expires: Apr 4, 2026